FAERS Safety Report 6081255-7 (Version None)
Quarter: 2009Q1

REPORT INFORMATION
  Report Type: 
  Country: None (occurrence: None)
  Receive Date: 20090213
  Receipt Date: 20090206
  Transmission Date: 20090719
  Serious: Yes (Other)
  Sender: FDA-Public Use
  Company Number: 041031

PATIENT
  Age: 19 Year
  Sex: Female
  Weight: 52.2 kg

DRUGS (1)
  1. PLAN B [Suspect]
     Indication: CONTRACEPTION
     Dosage: 1 TABLET, Q12HR, ORAL
     Route: 048
     Dates: start: 20090205, end: 20090205

REACTIONS (4)
  - HAEMATEMESIS [None]
  - NAUSEA [None]
  - RETCHING [None]
  - VAGINAL HAEMORRHAGE [None]
